FAERS Safety Report 10038891 (Version 1)
Quarter: 2014Q1

REPORT INFORMATION
  Report Type: Spontaneous
  Country: ES (occurrence: ES)
  Receive Date: 20140326
  Receipt Date: 20140326
  Transmission Date: 20141002
  Serious: Yes (Hospitalization)
  Sender: FDA-Public Use
  Company Number: ES-GLAXOSMITHKLINE-B0979894A

PATIENT
  Age: 66 Year
  Sex: Male

DRUGS (2)
  1. DUODART [Suspect]
     Indication: HYPERSPLENISM
     Route: 048
     Dates: start: 2013, end: 2013
  2. TESTOSTERONE [Suspect]
     Indication: HYPERSPLENISM
     Route: 065
     Dates: start: 2013, end: 2013

REACTIONS (1)
  - Haemolytic anaemia [Recovered/Resolved]
